FAERS Safety Report 5329216-7 (Version None)
Quarter: 2007Q2

REPORT INFORMATION
  Report Type: 
  Country: None (occurrence: None)
  Receive Date: 20070518
  Receipt Date: 20070508
  Transmission Date: 20071010
  Serious: Yes (Life-Threatening, Hospitalization)
  Sender: FDA-Public Use
  Company Number: ES-PFIZER INC-2007036290

PATIENT
  Age: 79 Year
  Sex: Male

DRUGS (2)
  1. ALDACTONE [Suspect]
     Dosage: DAILY DOSE:100MG-FREQ:DAILY
     Route: 048
  2. NORVASC [Suspect]
     Dosage: DAILY DOSE:10MG-FREQ:DAILY
     Route: 048

REACTIONS (1)
  - HYPERKALAEMIA [None]
